FAERS Safety Report 9986798 (Version 1)
Quarter: 2014Q1

REPORT INFORMATION
  Report Type: Spontaneous
  Country: US (occurrence: US)
  Receive Date: 20140307
  Receipt Date: 20140307
  Transmission Date: 20141002
  Serious: No
  Sender: FDA-Public Use
  Company Number: US-009507513-1403USA002558

PATIENT
  Sex: Male

DRUGS (1)
  1. REMERON [Suspect]
     Dosage: 15 MG, UNK
     Route: 048

REACTIONS (1)
  - Burning sensation [Not Recovered/Not Resolved]
